FAERS Safety Report 13828037 (Version 2)
Quarter: 2017Q3

REPORT INFORMATION
  Report Type: Spontaneous
  Country: US (occurrence: US)
  Receive Date: 20170803
  Receipt Date: 20170824
  Transmission Date: 20171127
  Serious: Yes (Hospitalization)
  Sender: FDA-Public Use
  Company Number: US-ROCHE-1958338

PATIENT
  Sex: Male

DRUGS (9)
  1. ESBRIET [Suspect]
     Active Substance: PIRFENIDONE
     Route: 048
     Dates: start: 20170621
  2. REMICADE [Concomitant]
     Active Substance: INFLIXIMAB
  3. LIPITOR [Concomitant]
     Active Substance: ATORVASTATIN CALCIUM
  4. MELOXICAM. [Concomitant]
     Active Substance: MELOXICAM
  5. ALEVE [Concomitant]
     Active Substance: NAPROXEN SODIUM
  6. ESBRIET [Suspect]
     Active Substance: PIRFENIDONE
     Indication: INTERSTITIAL LUNG DISEASE
     Route: 048
     Dates: start: 20170623
  7. LEVOTHYROXINE SODIUM. [Concomitant]
     Active Substance: LEVOTHYROXINE SODIUM
  8. ESBRIET [Suspect]
     Active Substance: PIRFENIDONE
     Route: 048
     Dates: start: 20170623
  9. ASPIR 81 [Concomitant]

REACTIONS (3)
  - Pneumonia [Unknown]
  - Gastrooesophageal reflux disease [Unknown]
  - Nausea [Unknown]
